FAERS Safety Report 8539910-2 (Version None)
Quarter: 2012Q3

REPORT INFORMATION
  Report Type: 
  Country: None (occurrence: None)
  Receive Date: 20120726
  Receipt Date: 20120719
  Transmission Date: 20120928
  Serious: Yes (Other)
  Sender: FDA-Public Use
  Company Number: US-009507513-1206USA01760B1

PATIENT

DRUGS (6)
  1. NORVIR [Suspect]
     Dosage: 200 MG, QD
     Route: 064
     Dates: start: 20111115, end: 20120516
  2. PREZISTA [Suspect]
     Dosage: 1200 MG, QD
     Route: 064
     Dates: start: 20111115, end: 20120516
  3. EPZICOM [Suspect]
     Dosage: 1 DF, QD
     Route: 064
     Dates: start: 20111115, end: 20120516
  4. RETROVIR [Suspect]
     Dosage: 2000 MG, QD
     Route: 064
     Dates: start: 20111115, end: 20120516
  5. ISENTRESS [Suspect]
     Indication: HIV INFECTION
     Dosage: 800 MG, QD
     Route: 064
     Dates: start: 20111115, end: 20120516
  6. INTELENCE [Suspect]
     Dosage: 400 MG, QD
     Route: 064
     Dates: start: 20111115, end: 20120516

REACTIONS (4)
  - LOW BIRTH WEIGHT BABY [None]
  - SMALL FOR DATES BABY [None]
  - FOETAL EXPOSURE DURING PREGNANCY [None]
  - FOETAL GROWTH RESTRICTION [None]
